FAERS Safety Report 5474609-0 (Version None)
Quarter: 2007Q3

REPORT INFORMATION
  Report Type: 
  Country: None (occurrence: None)
  Receive Date: 20070928
  Receipt Date: 20070918
  Transmission Date: 20080115
  Serious: Yes (Hospitalization)
  Sender: FDA-Public Use
  Company Number: 07-001907

PATIENT
  Age: 63 Year
  Sex: Male
  Weight: 142.4 kg

DRUGS (6)
  1. TACLONEX [Suspect]
     Indication: PSORIASIS
     Dosage: ONCE EVERY 3 WEEKS; TOPICAL
     Route: 061
     Dates: start: 20060101, end: 20070801
  2. DOVONEX (CALCIPOTRIOL) OINTMENT, 0.005% [Concomitant]
  3. TWO UNSPECIFIED BLOOD PRESSURE MEDICATIONS [Concomitant]
  4. UNSPECIFIED CHOLESTEROL MEDICATION [Concomitant]
  5. UNSPECIFIED DIURETIC [Concomitant]
  6. INSULIN (INSULIN) [Concomitant]

REACTIONS (3)
  - BETA HAEMOLYTIC STREPTOCOCCAL INFECTION [None]
  - DRUG INEFFECTIVE [None]
  - PRURITUS GENERALISED [None]
